FAERS Safety Report 4616589-3 (Version None)
Quarter: 2005Q1

REPORT INFORMATION
  Report Type: 
  Country: None (occurrence: None)
  Receive Date: 20050318
  Receipt Date: 20050309
  Transmission Date: 20050727
  Serious: Yes (Other)
  Sender: FDA-Public Use
  Company Number: 2005043286

PATIENT
  Age: 51 Year
  Sex: Female
  Weight: 78.9259 kg

DRUGS (5)
  1. ACCUPRIL [Suspect]
     Indication: HYPERTENSION
     Dosage: 10 MG (10 MG, 1 IN 1 D), ORAL
     Route: 048
  2. QUINAPRIL HCL [Suspect]
     Indication: HYPERTENSION
     Dosage: 40 MG (40 MG, 1 IN 1 D), ORAL
     Route: 048
     Dates: start: 20050223, end: 20050308
  3. FEXOFENADINE HYDROCHLORIDE [Concomitant]
  4. RABEPRAZOLE SODIUM [Concomitant]
  5. BUSPIRONE HCL [Concomitant]

REACTIONS (7)
  - ADRENAL INSUFFICIENCY [None]
  - DRUG EFFECT DECREASED [None]
  - NASAL CONGESTION [None]
  - PAIN [None]
  - PHARMACEUTICAL PRODUCT COMPLAINT [None]
  - RHINORRHOEA [None]
  - VEIN DISORDER [None]
